FAERS Safety Report 7998479-1 (Version None)
Quarter: 2011Q4

REPORT INFORMATION
  Report Type: 
  Country: None (occurrence: None)
  Receive Date: 20111221
  Receipt Date: 20111212
  Transmission Date: 20120403
  Serious: Yes (Hospitalization)
  Sender: FDA-Public Use
  Company Number: ES-ELI_LILLY_AND_COMPANY-ES201111007004

PATIENT
  Age: 35 Year
  Sex: Female

DRUGS (7)
  1. LEVOTHYROXINE SODIUM [Concomitant]
     Indication: THYROIDECTOMY
     Dosage: 150 UG, QD
     Route: 048
     Dates: start: 20050101
  2. RIBAVIRINE [Concomitant]
     Indication: HEPATITIS C
     Dosage: UNK
     Dates: start: 20041016
  3. PEGASYS [Concomitant]
     Indication: HEPATITIS C
     Dosage: UNK
     Dates: start: 20041016
  4. TRAMADOL HCL [Concomitant]
     Indication: IMMUNE RECONSTITUTION SYNDROME
     Dosage: 150 MG, QD
     Route: 048
     Dates: start: 20050101
  5. DEZACOR [Concomitant]
     Indication: IMMUNE RECONSTITUTION SYNDROME
     Dosage: 30 MG, QD
     Route: 048
     Dates: start: 20050101
  6. PROZAC [Suspect]
     Indication: DEPRESSION
     Dosage: 20 MG, QD
     Route: 048
     Dates: start: 20040101
  7. KINERET [Concomitant]
     Indication: IMMUNE RECONSTITUTION SYNDROME
     Dosage: 100 MG, QD
     Route: 048
     Dates: start: 20110829, end: 20111010

REACTIONS (3)
  - DRUG INTERACTION [None]
  - FALL [None]
  - SOMNOLENCE [None]
